APPROVED DRUG PRODUCT: DIPHENOXYLATE HYDROCHLORIDE AND ATROPINE SULFATE
Active Ingredient: ATROPINE SULFATE; DIPHENOXYLATE HYDROCHLORIDE
Strength: 0.025MG;2.5MG
Dosage Form/Route: TABLET;ORAL
Application: A213335 | Product #001 | TE Code: AA
Applicant: SPECGX LLC
Approved: Oct 6, 2020 | RLD: No | RS: No | Type: RX